FAERS Safety Report 9286557 (Version 2)
Quarter: 2013Q4

REPORT INFORMATION
  Report Type: Spontaneous
  Country: US (occurrence: US)
  Receive Date: 20130513
  Receipt Date: 20131030
  Transmission Date: 20140711
  Serious: Yes (Hospitalization)
  Sender: FDA-Public Use
  Company Number: US-B.I. PHARMACEUTICALS,INC./RIDGEFIELD-2013-BI-13052BP

PATIENT
  Age: 79 Year
  Sex: Male
  Weight: 68.04 kg

DRUGS (11)
  1. PRADAXA [Suspect]
     Indication: ATRIAL FLUTTER
     Dates: start: 20111202, end: 20120226
  2. PRADAXA [Suspect]
     Indication: CARDIAC DISORDER
  3. PLAVIX [Suspect]
     Indication: CARDIAC DISORDER
     Dates: end: 20120226
  4. COREG [Concomitant]
  5. DIGOXIN [Concomitant]
  6. ADVAIR [Concomitant]
  7. IMDUR [Concomitant]
  8. PROTONIX [Concomitant]
  9. SYMBICORT [Concomitant]
  10. LASIX [Concomitant]
  11. LISINOPRIL [Concomitant]

REACTIONS (4)
  - Upper gastrointestinal haemorrhage [Recovered/Resolved]
  - Haemorrhagic anaemia [Unknown]
  - Coagulopathy [Unknown]
  - Thrombocytopenia [Unknown]
